FAERS Safety Report 16578378 (Version 1)
Quarter: 2019Q3

REPORT INFORMATION
  Report Type: Spontaneous
  Country: IN (occurrence: IN)
  Receive Date: 20190716
  Receipt Date: 20190716
  Transmission Date: 20191004
  Serious: Yes (Life-Threatening)
  Sender: FDA-Public Use
  Company Number: IN-PFIZER INC-2019301217

PATIENT
  Sex: Female

DRUGS (1)
  1. MEROPENEM. [Suspect]
     Active Substance: MEROPENEM
     Indication: BURKHOLDERIA CEPACIA COMPLEX INFECTION
     Dosage: UNK
     Route: 042

REACTIONS (2)
  - Cyanosis [Recovering/Resolving]
  - Methaemoglobinaemia [Recovering/Resolving]
